FAERS Safety Report 18193397 (Version 1)
Quarter: 2020Q3

REPORT INFORMATION
  Report Type: Spontaneous
  Country: US (occurrence: US)
  Receive Date: 20200825
  Receipt Date: 20200825
  Transmission Date: 20201103
  Serious: No
  Sender: FDA-Public Use
  Company Number: US-BAYER-2020-172503

PATIENT
  Age: 91 Year
  Sex: Female

DRUGS (3)
  1. MILK OF MAGNESIA ORIGINAL [Suspect]
     Active Substance: MAGNESIUM HYDROXIDE
     Dosage: UNK
  2. COLACE [Concomitant]
     Active Substance: DOCUSATE SODIUM
  3. MIRALAX [Suspect]
     Active Substance: POLYETHYLENE GLYCOL 3350
     Dosage: HALF A CAPFUL TWICE A DAY

REACTIONS (5)
  - Pyrexia [Unknown]
  - Incorrect dosage administered [None]
  - Product prescribing issue [None]
  - Adverse drug reaction [Unknown]
  - Therapeutic response unexpected [Unknown]
